FAERS Safety Report 4687236-X (Version None)
Quarter: 2005Q2

REPORT INFORMATION
  Report Type: 
  Country: None (occurrence: None)
  Receive Date: 20050606
  Receipt Date: 20050531
  Transmission Date: 20051028
  Serious: Yes (Other)
  Sender: FDA-Public Use
  Company Number: 200510356BNE

PATIENT
  Age: 65 Year
  Sex: Male

DRUGS (9)
  1. MOXIFLOXACIN [Suspect]
     Indication: LOWER RESPIRATORY TRACT INFECTION
     Dosage: ORAL
     Route: 048
     Dates: start: 20050510, end: 20050520
  2. AMITRIPTYLINE [Concomitant]
  3. TOLBUTAMIDE [Concomitant]
  4. ATENOLOL [Concomitant]
  5. ASPIRIN [Concomitant]
  6. FRUSEMIDE [Concomitant]
  7. SIMVASTATIN [Concomitant]
  8. CO-CODAMOL [Concomitant]
  9. RAMIPRIL [Concomitant]

REACTIONS (2)
  - DIARRHOEA [None]
  - URINARY HESITATION [None]
